FAERS Safety Report 16863927 (Version 1)
Quarter: 2019Q3

REPORT INFORMATION
  Report Type: Spontaneous
  Country: US (occurrence: US)
  Receive Date: 20190927
  Receipt Date: 20190927
  Transmission Date: 20191005
  Serious: No
  Sender: FDA-Public Use
  Company Number: US-BAYER-2019-169399

PATIENT
  Age: 55 Year
  Sex: Male
  Weight: 100 kg

DRUGS (2)
  1. CLARITIN [Suspect]
     Active Substance: LORATADINE
     Indication: HYPERSENSITIVITY
     Dosage: UNK UNK, QD
     Route: 048
     Dates: start: 20190916, end: 20190916
  2. CLARITIN [Suspect]
     Active Substance: LORATADINE
     Indication: NASOPHARYNGITIS

REACTIONS (3)
  - Dyspnoea [Unknown]
  - Cold sweat [Unknown]
  - Dizziness [Unknown]

NARRATIVE: CASE EVENT DATE: 20190916
